FAERS Safety Report 8424370-2 (Version None)
Quarter: 2012Q2

REPORT INFORMATION
  Report Type: 
  Country: None (occurrence: None)
  Receive Date: 20120608
  Receipt Date: 20110930
  Transmission Date: 20120825
  Serious: No
  Sender: FDA-Public Use
  Company Number: CA-ASTRAZENECA-2011SE58931

PATIENT
  Sex: Female

DRUGS (4)
  1. PULMICORT FLEXHALER [Suspect]
     Dosage: THREE PUFFS, TWO TIMES A DAY
     Route: 055
  2. PULMICORT FLEXHALER [Suspect]
     Route: 055
     Dates: start: 20110721
  3. PULMICORT FLEXHALER [Suspect]
     Route: 055
     Dates: start: 20050101
  4. PULMICORT FLEXHALER [Suspect]
     Dosage: TWO PUFFS, TWO TIMEAS A DAY
     Route: 055

REACTIONS (1)
  - CARDIAC DISORDER [None]
